FAERS Safety Report 18424014 (Version 4)
Quarter: 2020Q4

REPORT INFORMATION
  Report Type: Spontaneous
  Country: JP (occurrence: JP)
  Receive Date: 20201025
  Receipt Date: 20201224
  Transmission Date: 20210114
  Serious: Yes (Hospitalization, Other)
  Sender: FDA-Public Use
  Company Number: JP-EXELIXIS-CABO-20034123

PATIENT
  Age: 68 Year
  Sex: Female

DRUGS (1)
  1. CABOMETYX [Suspect]
     Active Substance: CABOZANTINIB S-MALATE
     Indication: RENAL CELL CARCINOMA
     Dosage: 60 MG
     Route: 048
     Dates: start: 20200911, end: 202010

REACTIONS (7)
  - Fatigue [Not Recovered/Not Resolved]
  - Palmar-plantar erythrodysaesthesia syndrome [Not Recovered/Not Resolved]
  - Disease progression [Unknown]
  - Pleural effusion [Recovering/Resolving]
  - Renal cell carcinoma [Unknown]
  - Decreased appetite [Not Recovered/Not Resolved]
  - Epistaxis [Unknown]

NARRATIVE: CASE EVENT DATE: 20200918
